FAERS Safety Report 11283747 (Version 1)
Quarter: 2015Q3

REPORT INFORMATION
  Report Type: Report from Study
  Country: US (occurrence: US)
  Receive Date: 20150720
  Receipt Date: 20150720
  Transmission Date: 20151125
  Serious: Yes (Other)
  Sender: FDA-Public Use
  Company Number: US-VIIV HEALTHCARE LIMITED-US2015GSK103234

PATIENT
  Age: 21 Year
  Sex: Female

DRUGS (6)
  1. LAMIVUDINE AND ZIDOVUDINE [Suspect]
     Active Substance: LAMIVUDINE\ZIDOVUDINE
     Indication: ANTIVIRAL TREATMENT
     Dosage: UNK, U
     Route: 048
     Dates: start: 20110315, end: 20110518
  2. TENOFOVIR DISOPROXIL FUMARATE. [Suspect]
     Active Substance: TENOFOVIR DISOPROXIL FUMARATE
     Indication: ANTIVIRAL TREATMENT
     Dosage: UNK UNK, U
     Route: 048
     Dates: start: 20110518
  3. PREZISTA [Suspect]
     Active Substance: DARUNAVIR ETHANOLATE
     Indication: ANTIVIRAL TREATMENT
     Dosage: UNK
     Route: 048
     Dates: start: 20110604
  4. ZIDOVUDINE. [Suspect]
     Active Substance: ZIDOVUDINE
     Indication: ANTIVIRAL TREATMENT
     Dosage: UNK, U
     Route: 042
     Dates: start: 20110904, end: 20110907
  5. NORVIR [Suspect]
     Active Substance: RITONAVIR
     Indication: ANTIVIRAL TREATMENT
     Dosage: UNK, U
     Route: 048
     Dates: start: 20110315
  6. ABACAVIR SULFATE + LAMIVUDINE [Suspect]
     Active Substance: ABACAVIR SULFATE\LAMIVUDINE
     Indication: ANTIVIRAL TREATMENT
     Dosage: UNK UNK, U
     Route: 048
     Dates: start: 20110518

REACTIONS (3)
  - Exposure during pregnancy [Unknown]
  - Oligohydramnios [Unknown]
  - Live birth [Unknown]

NARRATIVE: CASE EVENT DATE: 20110907
